FAERS Safety Report 23115284 (Version 1)
Quarter: 2023Q4

REPORT INFORMATION
  Report Type: Spontaneous
  Country: US (occurrence: None)
  Receive Date: 20231026
  Receipt Date: 20231026
  Transmission Date: 20240110
  Serious: Yes (unspecified)
  Sender: FDA-Public Use
  Company Number: None

PATIENT
  Sex: Female
  Weight: 42.75 kg

DRUGS (6)
  1. PROLIA [Suspect]
     Active Substance: DENOSUMAB
  2. RISPERIDONE [Concomitant]
     Active Substance: RISPERIDONE
  3. BUPROPION [Concomitant]
     Active Substance: BUPROPION
  4. SERTRALINE [Concomitant]
     Active Substance: SERTRALINE HYDROCHLORIDE
  5. VITAMIN D [Concomitant]
     Active Substance: VITAMIN D NOS
  6. CALCIUM [Concomitant]
     Active Substance: CALCIUM

REACTIONS (3)
  - Oral disorder [None]
  - Exostosis [None]
  - Ulcer [None]
